FAERS Safety Report 8338545-4 (Version None)
Quarter: 2012Q2

REPORT INFORMATION
  Report Type: 
  Country: None (occurrence: None)
  Receive Date: 20120504
  Receipt Date: 20100506
  Transmission Date: 20120825
  Serious: No
  Sender: FDA-Public Use
  Company Number: US-TEVA-2010002581

PATIENT
  Sex: Male
  Weight: 61.29 kg

DRUGS (3)
  1. NUVIGIL [Suspect]
     Indication: NARCOLEPSY
     Route: 048
     Dates: start: 20091001, end: 20100201
  2. NUVIGIL [Suspect]
     Route: 048
     Dates: start: 20100201
  3. PROVIGIL [Suspect]
     Indication: NARCOLEPSY
     Route: 048
     Dates: start: 20081001, end: 20091001

REACTIONS (8)
  - ANGER [None]
  - HEADACHE [None]
  - NAUSEA [None]
  - DRUG INEFFECTIVE [None]
  - DEPRESSION [None]
  - DECREASED APPETITE [None]
  - PAIN IN EXTREMITY [None]
  - DRUG PRESCRIBING ERROR [None]
